FAERS Safety Report 18297875 (Version 1)
Quarter: 2020Q3

REPORT INFORMATION
  Report Type: Spontaneous
  Country: US (occurrence: US)
  Receive Date: 20200922
  Receipt Date: 20200922
  Transmission Date: 20201103
  Serious: No
  Sender: FDA-Public Use
  Company Number: US-TEVA-2020-US-1829527

PATIENT
  Age: 83 Year
  Sex: Female

DRUGS (1)
  1. CARVEDILOL TEVA [Suspect]
     Active Substance: CARVEDILOL
     Route: 065

REACTIONS (2)
  - Dizziness [Unknown]
  - Drug hypersensitivity [Unknown]
